FAERS Safety Report 5664629-5 (Version None)
Quarter: 2008Q1

REPORT INFORMATION
  Report Type: 
  Country: None (occurrence: None)
  Receive Date: 20080314
  Receipt Date: 20080303
  Transmission Date: 20080703
  Serious: Yes (Life-Threatening)
  Sender: FDA-Public Use
  Company Number: JP-MERCK-0803USA00847

PATIENT
  Age: 60 Year
  Sex: Male

DRUGS (2)
  1. PRIMAXIN [Suspect]
     Indication: INFECTIVE SPONDYLITIS
     Route: 041
     Dates: start: 20080228, end: 20080303
  2. FAMOTIDINE [Concomitant]
     Route: 065

REACTIONS (1)
  - HYPOAESTHESIA [None]
